FAERS Safety Report 6609083-1 (Version None)
Quarter: 2010Q1

REPORT INFORMATION
  Report Type: 
  Country: None (occurrence: None)
  Receive Date: 20100301
  Receipt Date: 20100216
  Transmission Date: 20100710
  Serious: Yes (Death)
  Sender: FDA-Public Use
  Company Number: IN-GENENTECH-298395

PATIENT
  Age: 65 Year
  Sex: Male

DRUGS (1)
  1. ACTIVASE [Suspect]
     Indication: ISCHAEMIC STROKE
     Dosage: 60 MG, UNK
     Route: 042
     Dates: start: 20100209

REACTIONS (2)
  - DEATH [None]
  - HAEMORRHAGE [None]
